FAERS Safety Report 8008598-1 (Version None)
Quarter: 2011Q4

REPORT INFORMATION
  Report Type: 
  Country: None (occurrence: None)
  Receive Date: 20111222
  Receipt Date: 20111213
  Transmission Date: 20120403
  Serious: Yes (Other)
  Sender: FDA-Public Use
  Company Number: AUR-APL-2011-06154

PATIENT
  Age: 45 Year
  Sex: Male

DRUGS (6)
  1. ZOLPIDEM [Suspect]
     Indication: SLEEP DISORDER
     Dosage: 10 MG
  2. ESCITALOPRAM [Concomitant]
  3. PROPRANOLOL [Concomitant]
  4. MIRTAZAPINE [Concomitant]
  5. LORAZEPAM [Concomitant]
  6. DISULFIRAM [Concomitant]

REACTIONS (10)
  - BLOOD PRESSURE FLUCTUATION [None]
  - INCORRECT DOSE ADMINISTERED [None]
  - BLOOD PRESSURE INCREASED [None]
  - AGITATION [None]
  - DRUG WITHDRAWAL SYNDROME [None]
  - COGNITIVE DISORDER [None]
  - REFUSAL OF TREATMENT BY PATIENT [None]
  - DRUG INTERACTION [None]
  - DRUG ADMINISTRATION ERROR [None]
  - DELIRIUM [None]
